FAERS Safety Report 9780905 (Version 2)
Quarter: 2014Q1

REPORT INFORMATION
  Report Type: Report from Study
  Country: UG (occurrence: UG)
  Receive Date: 20131224
  Receipt Date: 20140213
  Transmission Date: 20141002
  Serious: Yes (Death, Other)
  Sender: FDA-Public Use
  Company Number: PHHY2013UG150609

PATIENT
  Age: 51 Year
  Sex: Female

DRUGS (6)
  1. GLIVEC [Suspect]
     Indication: CHRONIC MYELOID LEUKAEMIA
     Dosage: 400 MG, UNK
  2. LOPINAVIR [Concomitant]
     Dosage: UNK UKN, UNK
     Dates: start: 200603
  3. RITONAVIR [Concomitant]
     Dosage: UNK UKN, UNK
     Dates: start: 200603
  4. TENOFOVIR [Concomitant]
     Dosage: UNK UKN, UNK
     Dates: start: 200603
  5. LAMIVUDINE [Concomitant]
     Dosage: UNK UKN, UNK
     Dates: start: 200603
  6. COTRIMOXAZOLE [Concomitant]
     Dosage: UNK UKN, UNK
     Dates: start: 200603

REACTIONS (2)
  - Death [Fatal]
  - Cerebrovascular accident [Unknown]
